FAERS Safety Report 5587739-X (Version None)
Quarter: 2008Q1

REPORT INFORMATION
  Report Type: 
  Country: None (occurrence: None)
  Receive Date: 20080108
  Receipt Date: 20071231
  Transmission Date: 20080703
  Serious: Yes (Hospitalization)
  Sender: FDA-Public Use
  Company Number: 2008SP000054

PATIENT
  Age: 73 Year
  Sex: Female
  Weight: 69.8539 kg

DRUGS (2)
  1. PEG-INTRON [Suspect]
     Indication: HEPATITIS C
     Dosage: SC
     Route: 058
     Dates: start: 20071120
  2. RIBAVIRIN [Suspect]
     Indication: HEPATITIS C
     Dosage: PO
     Route: 048
     Dates: start: 20071120

REACTIONS (7)
  - ALTERED STATE OF CONSCIOUSNESS [None]
  - FEELING HOT [None]
  - HYPERHIDROSIS [None]
  - ORAL INTAKE REDUCED [None]
  - PALLOR [None]
  - STARING [None]
  - WEIGHT DECREASED [None]
